FAERS Safety Report 24282313 (Version 4)
Quarter: 2024Q4

REPORT INFORMATION
  Report Type: Spontaneous
  Country: US (occurrence: US)
  Receive Date: 20240904
  Receipt Date: 20241004
  Transmission Date: 20250114
  Serious: Yes (Death)
  Sender: PFIZER
  Company Number: US-PFIZER INC-202400249722

PATIENT
  Age: 74 Year
  Sex: Male
  Weight: 48.073 kg

DRUGS (6)
  1. MEKTOVI [Suspect]
     Active Substance: BINIMETINIB
     Indication: Malignant melanoma
     Dosage: 15 MG, DAILY
  2. MEKTOVI [Suspect]
     Active Substance: BINIMETINIB
     Dosage: 15 MG X 6 DAILY
     Route: 048
     Dates: start: 20240403, end: 20240822
  3. BRAFTOVI [Suspect]
     Active Substance: ENCORAFENIB
     Indication: Malignant melanoma
     Dosage: 75 MG, DAILY
  4. BRAFTOVI [Suspect]
     Active Substance: ENCORAFENIB
     Dosage: 15 MG, DAILY X 6 DAILY
     Route: 048
     Dates: start: 20240403, end: 20240822
  5. DEXAMETHASONE [Concomitant]
     Active Substance: DEXAMETHASONE
     Indication: Oedema
     Dosage: 2 MG
  6. KEPPRA [Concomitant]
     Active Substance: LEVETIRACETAM
     Indication: Seizure
     Dosage: HE ONLY TOOK 2 PILLS PERIOD

REACTIONS (1)
  - Death [Fatal]

NARRATIVE: CASE EVENT DATE: 20240825
